FAERS Safety Report 25229908 (Version 1)
Quarter: 2025Q2

REPORT INFORMATION
  Report Type: Spontaneous
  Country: US (occurrence: US)
  Receive Date: 20250423
  Receipt Date: 20250423
  Transmission Date: 20250717
  Serious: No
  Sender: SANDOZ
  Company Number: US-SANDOZ-SDZ2025US025291

PATIENT

DRUGS (1)
  1. RITALIN [Suspect]
     Active Substance: METHYLPHENIDATE HYDROCHLORIDE
     Indication: Product used for unknown indication
     Route: 065
     Dates: start: 20250404

REACTIONS (4)
  - Fungal infection [Unknown]
  - Pruritus genital [Unknown]
  - Genital erythema [Unknown]
  - Genital discomfort [Unknown]

NARRATIVE: CASE EVENT DATE: 20250401
